FAERS Safety Report 6053658-8 (Version None)
Quarter: 2009Q1

REPORT INFORMATION
  Report Type: 
  Country: None (occurrence: None)
  Receive Date: 20090127
  Receipt Date: 20080115
  Transmission Date: 20090719
  Serious: No
  Sender: FDA-Public Use
  Company Number: US-TEVA-166421USA

PATIENT
  Sex: Male

DRUGS (6)
  1. COPAXONE [Suspect]
     Indication: MULTIPLE SCLEROSIS
     Route: 058
     Dates: end: 20060401
  2. METHYLPHENIDATE HCL [Concomitant]
  3. METHADONE HCL [Concomitant]
  4. BUPROPION HCL [Concomitant]
  5. METHYLPREDNISOLONE SODIUM SUCCINATE [Concomitant]
  6. PREDNISONE [Concomitant]

REACTIONS (1)
  - SKIN REACTION [None]
